FAERS Safety Report 9513835 (Version 1)
Quarter: 2013Q3

REPORT INFORMATION
  Report Type: Spontaneous
  Country: US (occurrence: US)
  Receive Date: 20130910
  Receipt Date: 20130910
  Transmission Date: 20140515
  Serious: Yes (Hospitalization)
  Sender: FDA-Public Use
  Company Number: US-B.I. PHARMACEUTICALS,INC./RIDGEFIELD-2013-BI-27362BP

PATIENT
  Sex: Female
  Weight: 45 kg

DRUGS (4)
  1. COMBIVENT [Suspect]
     Indication: CHRONIC OBSTRUCTIVE PULMONARY DISEASE
     Dosage: STRENGTH: 18 MCG / 103 MCG; DAILY DOSE: 144 MCG / 824 MCG
     Route: 055
     Dates: start: 2009, end: 201306
  2. COMBIVENT [Suspect]
     Indication: CHRONIC OBSTRUCTIVE PULMONARY DISEASE
     Dosage: STRENGTH: 20MCG / 100 MCG; DAILY DOSE: 80 MCG / 400 MCG
     Route: 055
     Dates: start: 201305
  3. ALBUTEROL NEBULIZER [Concomitant]
     Indication: BRONCHITIS
     Dosage: (INHALATION SOLUTION) STRENGTH: 1 VIAL; DAILY DOSE: 4 VIALS
     Route: 055
     Dates: start: 2006
  4. ASMANEX [Concomitant]
     Indication: BRONCHIAL SECRETION RETENTION
     Dosage: 440 MG
     Route: 055
     Dates: start: 2010

REACTIONS (7)
  - Cerebrovascular accident [Recovered/Resolved with Sequelae]
  - Pelvic fracture [Not Recovered/Not Resolved]
  - Fall [Recovered/Resolved]
  - Fall [Recovered/Resolved]
  - Contusion [Recovered/Resolved]
  - Rhinorrhoea [Not Recovered/Not Resolved]
  - Pulmonary congestion [Not Recovered/Not Resolved]
